FAERS Safety Report 15316431 (Version 2)
Quarter: 2018Q3

REPORT INFORMATION
  Report Type: Spontaneous
  Country: FR (occurrence: FR)
  Receive Date: 20180824
  Receipt Date: 20180912
  Transmission Date: 20181010
  Serious: Yes (Death)
  Sender: FDA-Public Use
  Company Number: FR-PFIZER INC-2018339654

PATIENT
  Age: 38 Year
  Sex: Female

DRUGS (9)
  1. ANTILYMPHOCYTE IMMUNOGLOBULINS [Suspect]
     Active Substance: THYMOCYTE IMMUNE GLOBULIN NOS
     Indication: IMMUNOSUPPRESSANT DRUG THERAPY
     Dosage: UNK
     Route: 065
  2. SOLIRIS [Suspect]
     Active Substance: ECULIZUMAB
     Indication: TRANSPLANT REJECTION
     Dosage: 300 MG, UNK
     Route: 042
     Dates: start: 201504
  3. TACROLIMUS. [Suspect]
     Active Substance: TACROLIMUS
     Indication: SKIN GRAFT
  4. PREDNISONE. [Suspect]
     Active Substance: PREDNISONE
     Indication: PROPHYLAXIS AGAINST TRANSPLANT REJECTION
  5. SIROLIMUS. [Suspect]
     Active Substance: SIROLIMUS
     Indication: IMMUNOSUPPRESSANT DRUG THERAPY
     Dosage: UNK
  6. MMF [Suspect]
     Active Substance: MYCOPHENOLATE MOFETIL
     Indication: SKIN GRAFT
     Dosage: 1.5 MG, 1X/DAY (QD)
     Route: 065
  7. TACROLIMUS. [Suspect]
     Active Substance: TACROLIMUS
     Indication: IMMUNOSUPPRESSION
     Dosage: 3 MG, 1X/DAY (QD)
     Route: 065
  8. MMF [Suspect]
     Active Substance: MYCOPHENOLATE MOFETIL
     Indication: IMMUNOSUPPRESSION
  9. PREDNISONE. [Suspect]
     Active Substance: PREDNISONE
     Indication: SKIN GRAFT
     Dosage: 5 MG, UNK
     Route: 065

REACTIONS (1)
  - Product use in unapproved indication [Unknown]
